FAERS Safety Report 8060338-6 (Version None)
Quarter: 2012Q1

REPORT INFORMATION
  Report Type: 
  Country: None (occurrence: None)
  Receive Date: 20120120
  Receipt Date: 20111111
  Transmission Date: 20120608
  Serious: No
  Sender: FDA-Public Use
  Company Number: US-NOVEN-11US003619

PATIENT
  Sex: Male

DRUGS (2)
  1. OXYCODONE HCL [Concomitant]
     Indication: PAIN
     Dosage: 10 MG, EVERY 6 HR PRN
     Route: 048
  2. FENTANYL [Suspect]
     Indication: PAIN
     Dosage: UNK, EVERY 72 HOURS
     Route: 062
     Dates: start: 20111101

REACTIONS (2)
  - INADEQUATE ANALGESIA [None]
  - INSOMNIA [None]
